FAERS Safety Report 23531557 (Version 1)
Quarter: 2024Q1

REPORT INFORMATION
  Report Type: Report from Study
  Country: US (occurrence: US)
  Receive Date: 20240216
  Receipt Date: 20240216
  Transmission Date: 20240409
  Serious: Yes (Other)
  Sender: FDA-Public Use
  Company Number: US-MYLANLABS-2024M1014555

PATIENT
  Age: 70 Year
  Sex: Female

DRUGS (1)
  1. CLOBETASOL [Suspect]
     Active Substance: CLOBETASOL
     Indication: Immunosuppressant drug therapy
     Dosage: UNK
     Route: 061

REACTIONS (1)
  - Epstein-Barr virus associated lymphoproliferative disorder [Not Recovered/Not Resolved]
